FAERS Safety Report 8173888-9 (Version None)
Quarter: 2012Q1

REPORT INFORMATION
  Report Type: 
  Country: None (occurrence: None)
  Receive Date: 20120229
  Receipt Date: 20120217
  Transmission Date: 20120608
  Serious: Yes (Other)
  Sender: FDA-Public Use
  Company Number: US-ELI_LILLY_AND_COMPANY-US201105001701

PATIENT
  Age: 86 Year
  Sex: Female

DRUGS (1)
  1. FORTEO [Suspect]
     Indication: OSTEOPOROSIS
     Dosage: UNK, UNKNOWN

REACTIONS (8)
  - TYPE 2 DIABETES MELLITUS [None]
  - CELLULITIS [None]
  - LIGAMENT RUPTURE [None]
  - WOUND INFECTION [None]
  - OEDEMA PERIPHERAL [None]
  - DYSPEPSIA [None]
  - POOR PERIPHERAL CIRCULATION [None]
  - SKIN INJURY [None]
